FAERS Safety Report 5495943-4 (Version None)
Quarter: 2007Q4

REPORT INFORMATION
  Report Type: 
  Country: None (occurrence: None)
  Receive Date: 20071025
  Receipt Date: 20070206
  Transmission Date: 20080405
  Serious: No
  Sender: FDA-Public Use
  Company Number: A0632865A

PATIENT
  Age: 65 Year
  Sex: Male
  Weight: 83.6 kg

DRUGS (13)
  1. ADVAIR DISKUS 100/50 [Suspect]
     Indication: CHRONIC OBSTRUCTIVE PULMONARY DISEASE
     Dosage: 1PUFF TWICE PER DAY
     Route: 055
     Dates: start: 20060101
  2. ALBUTEROL [Concomitant]
  3. TENEX [Concomitant]
  4. LOVASTATIN [Concomitant]
  5. ADVIL LIQUI-GELS [Concomitant]
  6. ASPIRIN [Concomitant]
  7. MULTI-VITAMIN [Concomitant]
  8. TOPROL-XL [Concomitant]
  9. DYAZIDE [Concomitant]
  10. ZANTAC [Concomitant]
  11. LOMOTIL [Concomitant]
  12. MYLANTA [Concomitant]
  13. METFORMIN [Concomitant]

REACTIONS (7)
  - COUGH [None]
  - DRUG INEFFECTIVE [None]
  - DYSPHONIA [None]
  - IRRITABLE BOWEL SYNDROME [None]
  - RESPIRATORY TRACT INFECTION [None]
  - SINUSITIS [None]
  - THROAT IRRITATION [None]
